FAERS Safety Report 7825356-9 (Version None)
Quarter: 2011Q4

REPORT INFORMATION
  Report Type: 
  Country: None (occurrence: None)
  Receive Date: 20111019
  Receipt Date: 20111013
  Transmission Date: 20120403
  Serious: Yes (Hospitalization)
  Sender: FDA-Public Use
  Company Number: PHHO2011US05220

PATIENT
  Sex: Female
  Weight: 81.2 kg

DRUGS (3)
  1. CYTARABINE [Suspect]
  2. IDARUBICIN HCL [Suspect]
  3. LBH589 [Suspect]
     Indication: ACUTE MYELOID LEUKAEMIA
     Dosage: 20 MG WEEKLY X TIW
     Route: 048
     Dates: start: 20110113

REACTIONS (2)
  - FEBRILE NEUTROPENIA [None]
  - STREPTOCOCCAL BACTERAEMIA [None]
